FAERS Safety Report 10201977 (Version 1)
Quarter: 2014Q2

REPORT INFORMATION
  Report Type: Report from Study
  Country: US (occurrence: US)
  Receive Date: 20140528
  Receipt Date: 20140528
  Transmission Date: 20141212
  Serious: Yes (Other)
  Sender: FDA-Public Use
  Company Number: US-SA-2014SA064552

PATIENT
  Sex: Male

DRUGS (4)
  1. LANTUS SOLOSTAR [Suspect]
     Indication: PRODUCT USED FOR UNKNOWN INDICATION
     Dosage: DOSE:70 UNIT(S)
     Route: 058
     Dates: start: 20131115
  2. APIDRA SOLOSTAR [Suspect]
     Indication: PRODUCT USED FOR UNKNOWN INDICATION
     Route: 065
     Dates: start: 20131115
  3. SOLOSTAR [Concomitant]
     Dates: start: 20131115
  4. SOLOSTAR [Concomitant]
     Dates: start: 20131115

REACTIONS (1)
  - Rectal neoplasm [Unknown]
